FAERS Safety Report 24823528 (Version 1)
Quarter: 2025Q1

REPORT INFORMATION
  Report Type: Spontaneous
  Country: NO (occurrence: NO)
  Receive Date: 20250109
  Receipt Date: 20250109
  Transmission Date: 20250409
  Serious: Yes (Other)
  Sender: ALKEM
  Company Number: NO-ALKEM LABORATORIES LIMITED-NO-ALKEM-2024-03084

PATIENT
  Age: 63 Year
  Sex: Male

DRUGS (8)
  1. METHADONE HYDROCHLORIDE [Suspect]
     Active Substance: METHADONE HYDROCHLORIDE
     Indication: Product used for unknown indication
     Dosage: 100 MILLIGRAM, QD (ON METHADONE (DAY 0))
     Route: 065
  2. METHADONE HYDROCHLORIDE [Suspect]
     Active Substance: METHADONE HYDROCHLORIDE
     Dosage: 50 MILLIGRAM, QD (ON R-METHADONE (DAY 14))
     Route: 065
  3. METHADONE HYDROCHLORIDE [Suspect]
     Active Substance: METHADONE HYDROCHLORIDE
     Dosage: 50 MILLIGRAM, QD (ON R-METHADONE (DAY 28))
     Route: 065
  4. EMTRICITABINE [Concomitant]
     Active Substance: EMTRICITABINE
     Indication: Product used for unknown indication
     Route: 065
  5. HEPARIN [Concomitant]
     Active Substance: HEPARIN SODIUM
     Indication: Product used for unknown indication
     Route: 065
  6. NITRAZEPAM [Concomitant]
     Active Substance: NITRAZEPAM
     Indication: Product used for unknown indication
     Route: 065
  7. OXAZEPAM [Concomitant]
     Active Substance: OXAZEPAM
     Indication: Product used for unknown indication
     Route: 065
  8. TENOFOVIR DISOPROXIL [Concomitant]
     Active Substance: TENOFOVIR DISOPROXIL
     Indication: Product used for unknown indication
     Route: 065

REACTIONS (3)
  - Electrocardiogram QT prolonged [Unknown]
  - Drug level increased [Unknown]
  - Drug withdrawal syndrome [Unknown]
